FAERS Safety Report 6343027-5 (Version None)
Quarter: 2009Q3

REPORT INFORMATION
  Report Type: 
  Country: None (occurrence: None)
  Receive Date: 20090908
  Receipt Date: 20090903
  Transmission Date: 20100115
  Serious: Yes (Disabling, Other)
  Sender: FDA-Public Use
  Company Number: FR-BRISTOL-MYERS SQUIBB COMPANY-14766869

PATIENT
  Age: 58 Year
  Sex: Female

DRUGS (5)
  1. TAXOL [Suspect]
     Indication: BREAST CANCER METASTATIC
     Dosage: APR08-SEP08 (CYCLES-6) ;24MAR09-STOPPED
     Route: 042
     Dates: start: 20090324, end: 20090518
  2. AVASTIN [Suspect]
     Indication: BREAST CANCER METASTATIC
     Route: 042
     Dates: start: 20080401, end: 20090518
  3. COZAAR [Concomitant]
  4. GLUCOPHAGE [Concomitant]
  5. DIAMICRON [Concomitant]

REACTIONS (2)
  - CARDIOMYOPATHY [None]
  - EJECTION FRACTION DECREASED [None]
